FAERS Safety Report 7477148-0 (Version None)
Quarter: 2011Q2

REPORT INFORMATION
  Report Type: 
  Country: None (occurrence: None)
  Receive Date: 20110512
  Receipt Date: 20110209
  Transmission Date: 20111010
  Serious: No
  Sender: FDA-Public Use
  Company Number: US-NOVEN-11US001763

PATIENT
  Sex: Female
  Weight: 31.746 kg

DRUGS (3)
  1. STRATTERA [Concomitant]
     Indication: AFFECTIVE DISORDER
     Dosage: 60 MG, UNK
     Route: 048
     Dates: start: 20101201
  2. DAYTRANA [Suspect]
     Indication: ATTENTION DEFICIT/HYPERACTIVITY DISORDER
     Dosage: 20 MG, QD
     Route: 062
     Dates: start: 20110209
  3. FOCALIN [Concomitant]
     Indication: ATTENTION DEFICIT/HYPERACTIVITY DISORDER
     Dosage: 15 MG, UNK
     Route: 048
     Dates: start: 20101101, end: 20110208

REACTIONS (5)
  - DISTURBANCE IN ATTENTION [None]
  - INCORRECT DRUG ADMINISTRATION DURATION [None]
  - DRUG ADMINISTRATION ERROR [None]
  - PRODUCT QUALITY ISSUE [None]
  - DRUG INEFFECTIVE [None]
